FAERS Safety Report 10259879 (Version 2)
Quarter: 2014Q3

REPORT INFORMATION
  Report Type: Spontaneous
  Country: JP (occurrence: JP)
  Receive Date: 20140625
  Receipt Date: 20140703
  Transmission Date: 20150326
  Serious: Yes (Hospitalization)
  Sender: FDA-Public Use
  Company Number: JP-GLAXOSMITHKLINE-B0998941A

PATIENT
  Age: 75 Year
  Sex: Male

DRUGS (7)
  1. THEOPHYLLINE [Concomitant]
     Active Substance: THEOPHYLLINE
     Indication: ASTHMA
     Dosage: 1IUAX TWICE PER DAY
     Route: 048
     Dates: start: 20140507, end: 20140520
  2. CARBOCISTEINE [Concomitant]
     Active Substance: CARBOCYSTEINE
     Indication: CHRONIC OBSTRUCTIVE PULMONARY DISEASE
     Dosage: 2IUAX TWICE PER DAY
     Route: 048
     Dates: start: 20140507, end: 20140520
  3. RELVAR ELLIPTA [Suspect]
     Active Substance: FLUTICASONE FUROATE\VILANTEROL TRIFENATATE
     Indication: ASTHMA
     Dosage: 1IUAX PER DAY
     Route: 055
     Dates: start: 20140507
  4. SPIRIVA [Concomitant]
     Active Substance: TIOTROPIUM BROMIDE MONOHYDRATE
     Indication: CHRONIC OBSTRUCTIVE PULMONARY DISEASE
     Dosage: 2IUAX PER DAY
     Route: 055
     Dates: start: 20130201, end: 20140520
  5. PREDONINE [Concomitant]
     Active Substance: PREDNISOLONE\PREDNISOLONE ACETATE\PREDNISOLONE SODIUM SUCCINATE
     Indication: ASTHMA
     Dosage: 2IUAX TWICE PER DAY
     Route: 048
     Dates: start: 20140507, end: 20140520
  6. ONBREZ [Concomitant]
     Active Substance: INDACATEROL
     Dosage: 150MCG PER DAY
     Route: 055
     Dates: start: 20131120, end: 20140507
  7. CONIEL [Concomitant]
     Active Substance: BENIDIPINE HYDROCHLORIDE
     Indication: HYPERTENSION
     Route: 048

REACTIONS (9)
  - Cardiomyopathy alcoholic [Unknown]
  - Supraventricular tachycardia [Recovered/Resolved]
  - Extrasystoles [Unknown]
  - Arrhythmia [Unknown]
  - Atrial fibrillation [Unknown]
  - Cardiac failure [Unknown]
  - Ventricular extrasystoles [Unknown]
  - Renal failure [Unknown]
  - Dyspnoea [Unknown]

NARRATIVE: CASE EVENT DATE: 20140521
